FAERS Safety Report 23093615 (Version 1)
Quarter: 2023Q4

REPORT INFORMATION
  Report Type: Spontaneous
  Country: US (occurrence: US)
  Receive Date: 20231023
  Receipt Date: 20231023
  Transmission Date: 20240110
  Serious: No
  Sender: FDA-Public Use
  Company Number: US-SA-SAC20231019000279

PATIENT
  Age: 66 Year
  Sex: Female
  Weight: 78.912 kg

DRUGS (4)
  1. DUPIXENT [Suspect]
     Active Substance: DUPILUMAB
     Indication: Pemphigoid
     Dosage: UNK UNK, 1X
     Route: 058
     Dates: start: 20231010, end: 20231010
  2. DUPIXENT [Suspect]
     Active Substance: DUPILUMAB
     Indication: Actinic keratosis
  3. DUPIXENT [Suspect]
     Active Substance: DUPILUMAB
     Indication: Neoplasm
  4. DUPIXENT [Suspect]
     Active Substance: DUPILUMAB
     Indication: Skin cancer

REACTIONS (3)
  - Product use in unapproved indication [Unknown]
  - Accidental exposure to product [Unknown]
  - Exposure via skin contact [Unknown]

NARRATIVE: CASE EVENT DATE: 20231010
